FAERS Safety Report 9318557 (Version 1)
Quarter: 2013Q2

REPORT INFORMATION
  Report Type: Spontaneous
  Country: GB (occurrence: GB)
  Receive Date: 20130530
  Receipt Date: 20130530
  Transmission Date: 20140414
  Serious: Yes (Death, Other)
  Sender: FDA-Public Use
  Company Number: GB-ELI_LILLY_AND_COMPANY-GB201305006032

PATIENT
  Age: 60 Year
  Sex: Male
  Weight: 97 kg

DRUGS (2)
  1. TADALAFIL [Suspect]
     Indication: ERECTILE DYSFUNCTION
     Dosage: 5 MG, QD
     Route: 048
     Dates: start: 20130415, end: 20130507
  2. TADALAFIL [Suspect]
     Dosage: 10 MG, UNKNOWN

REACTIONS (3)
  - Cardiac arrest [Fatal]
  - Myocardial infarction [Not Recovered/Not Resolved]
  - Adverse drug reaction [Not Recovered/Not Resolved]
